FAERS Safety Report 23380530 (Version 1)
Quarter: 2024Q1

REPORT INFORMATION
  Report Type: Spontaneous
  Country: DE (occurrence: DE)
  Receive Date: 20240109
  Receipt Date: 20240109
  Transmission Date: 20240409
  Serious: No
  Sender: FDA-Public Use
  Company Number: None

PATIENT
  Age: 50 Year
  Sex: Female
  Weight: 80 kg

DRUGS (4)
  1. IBUPROFEN [Interacting]
     Active Substance: IBUPROFEN
     Indication: Influenza like illness
     Dosage: UNK
     Route: 065
  2. ACETAMINOPHEN [Interacting]
     Active Substance: ACETAMINOPHEN
     Indication: Influenza like illness
     Dosage: UNK
     Route: 065
  3. PREDNISOLONE ACETATE [Interacting]
     Active Substance: PREDNISOLONE ACETATE
     Indication: Postoperative care
     Dosage: 4 DROP, QD (EVERY 1 DAY)
     Dates: start: 20231115, end: 20231120
  4. PREDNISOLONE ACETATE [Interacting]
     Active Substance: PREDNISOLONE ACETATE
     Indication: Cataract operation

REACTIONS (11)
  - Delusion [Not Recovered/Not Resolved]
  - Infection susceptibility increased [Not Recovered/Not Resolved]
  - Psychotic disorder [Not Recovered/Not Resolved]
  - Drug interaction [Unknown]
  - Taste disorder [Not Recovered/Not Resolved]
  - Decreased appetite [Not Recovered/Not Resolved]
  - Headache [Not Recovered/Not Resolved]
  - Hypertension [Not Recovered/Not Resolved]
  - Insomnia [Not Recovered/Not Resolved]
  - Palpitations [Not Recovered/Not Resolved]
  - Tinnitus [Not Recovered/Not Resolved]

NARRATIVE: CASE EVENT DATE: 20231118
